FAERS Safety Report 4526629-8 (Version None)
Quarter: 2004Q4

REPORT INFORMATION
  Report Type: 
  Country: None (occurrence: None)
  Receive Date: 20041214
  Receipt Date: 20040712
  Transmission Date: 20050328
  Serious: Yes (Hospitalization)
  Sender: FDA-Public Use
  Company Number: US-GLAXOSMITHKLINE-A0517853A

PATIENT
  Age: 55 Year
  Sex: Female
  Weight: 69.1 kg

DRUGS (5)
  1. IMITREX [Suspect]
     Indication: MIGRAINE
     Route: 058
     Dates: start: 19930101, end: 20030101
  2. ASPIRIN [Concomitant]
  3. MULTIVITAMIN [Concomitant]
  4. TETANUS VACCINE [Concomitant]
  5. PAIN MEDICATION [Concomitant]

REACTIONS (3)
  - ABDOMINAL PAIN UPPER [None]
  - MYOCARDIAL INFARCTION [None]
  - RETROPERITONEAL FIBROSIS [None]
